FAERS Safety Report 19804151 (Version 1)
Quarter: 2021Q3

REPORT INFORMATION
  Report Type: Spontaneous
  Country: US (occurrence: US)
  Receive Date: 20210908
  Receipt Date: 20210908
  Transmission Date: 20211014
  Serious: No
  Sender: FDA-Public Use
  Company Number: US-FARMAPROD-202107-1079

PATIENT
  Age: 46 Year
  Sex: Female
  Weight: 42.95 kg

DRUGS (10)
  1. OXERVATE [Suspect]
     Active Substance: CENEGERMIN-BKBJ
     Indication: NEUROTROPHIC KERATOPATHY
     Route: 047
     Dates: start: 20210525
  2. IRON [Concomitant]
     Active Substance: IRON
  3. MULTI?VITAMIN [Concomitant]
     Active Substance: .ALPHA.-TOCOPHEROL ACETATE, DL-\ASCORBIC ACID\CYANOCOBALAMIN\FLUORIDE ION\FOLIC ACID\NIACIN\PYRIDOXINE\RIBOFLAVIN\THIAMINE\VITAMIN A\VITAMIN D
  4. SF 5000 PLUS [Concomitant]
     Active Substance: SODIUM FLUORIDE
  5. RESTASIS [Concomitant]
     Active Substance: CYCLOSPORINE
  6. CYMBALTA [Concomitant]
     Active Substance: DULOXETINE HYDROCHLORIDE
  7. LEVOTHYROXINE. [Concomitant]
     Active Substance: LEVOTHYROXINE
  8. GABAPENTIN. [Concomitant]
     Active Substance: GABAPENTIN
  9. MAGNESIUM [Concomitant]
     Active Substance: MAGNESIUM
  10. GENTAMICIN SULPHATE [Concomitant]
     Active Substance: GENTAMICIN SULFATE

REACTIONS (1)
  - Eye infection [Unknown]
